FAERS Safety Report 9283760 (Version 1)
Quarter: 2013Q2

REPORT INFORMATION
  Report Type: Spontaneous
  Country: DK (occurrence: DK)
  Receive Date: 20130510
  Receipt Date: 20130510
  Transmission Date: 20140414
  Serious: Yes (Hospitalization, Other)
  Sender: FDA-Public Use
  Company Number: PHHY2013DK044943

PATIENT
  Age: 35 Year
  Sex: Female

DRUGS (4)
  1. SALBUTAMOL [Suspect]
     Indication: ASTHMA
     Dosage: 5 MG
  2. IPRATROPIUM [Concomitant]
     Indication: ASTHMA
     Dosage: 0.5 MG, 6QD
  3. METHYLPREDNISOLONE [Concomitant]
  4. PREDNISOLONE [Concomitant]

REACTIONS (4)
  - Lactic acidosis [Recovering/Resolving]
  - Asthma [Unknown]
  - Tachypnoea [Recovering/Resolving]
  - Tachycardia [Recovering/Resolving]
